FAERS Safety Report 10186913 (Version 1)
Quarter: 2014Q2

REPORT INFORMATION
  Report Type: Spontaneous
  Country: US (occurrence: US)
  Receive Date: 20140522
  Receipt Date: 20140522
  Transmission Date: 20141212
  Serious: Yes (Other)
  Sender: FDA-Public Use
  Company Number: US-BEH-2014042552

PATIENT
  Sex: Female
  Weight: 88 kg

DRUGS (38)
  1. ZEMAIRA [Suspect]
     Indication: ALPHA-1 ANTI-TRYPSIN DEFICIENCY
     Route: 042
  2. PROGRAF [Concomitant]
  3. MOXIFLOXACIN [Concomitant]
  4. CLINDAMYCIN HCL [Concomitant]
  5. PREDNISONE [Concomitant]
  6. LYRICA [Concomitant]
  7. DIPHENHYDRAMINE HYDROCHLORIDE [Concomitant]
  8. HEPARIN [Concomitant]
  9. LIDOCAINE [Concomitant]
  10. SODIUM CHLORIDE [Concomitant]
  11. EPI-PEN [Concomitant]
  12. FUROSEMIDE [Concomitant]
  13. POTASSIUM CL ER [Concomitant]
  14. NEXIUM  DR [Concomitant]
  15. XANAX [Concomitant]
  16. METOPROLOL TARTRATE [Concomitant]
  17. TRAMADOL HCL [Concomitant]
  18. IBUPROFEN [Concomitant]
  19. AZITHROMYCIN [Concomitant]
  20. NASOGEL SALINE [Concomitant]
  21. BECLOMETHASONE DIPROPIONATE [Concomitant]
  22. SINGULAIR [Concomitant]
  23. ZOLPIDEM TARTRATE [Concomitant]
  24. REVATIO [Concomitant]
  25. CALCIUM [Concomitant]
  26. ADVIL COLD + SINUS [Concomitant]
  27. PROAIR HFA [Concomitant]
  28. CVS STOOL SOFTENER [Concomitant]
  29. LEVOFLOXACIN [Concomitant]
  30. PSEUDOEPHEDRINE ER [Concomitant]
  31. CYMBALTA [Concomitant]
  32. VICODIN [Concomitant]
     Dosage: 5-500
  33. ADVAIR [Concomitant]
  34. SPIRIVA [Concomitant]
  35. FLEXERIL [Concomitant]
  36. PREVACID DR [Concomitant]
  37. CVS GLUCOSAMINE CHONDROITIN [Concomitant]
  38. CVS VITAMIN D3 [Concomitant]

REACTIONS (3)
  - Tunnel vision [Unknown]
  - Hearing impaired [Unknown]
  - Fall [Unknown]
